FAERS Safety Report 9741909 (Version 2)
Quarter: 2014Q1

REPORT INFORMATION
  Report Type: Spontaneous
  Country: US (occurrence: US)
  Receive Date: 20131210
  Receipt Date: 20140314
  Transmission Date: 20141002
  Serious: Yes (Other)
  Sender: FDA-Public Use
  Company Number: US-JNJFOC-20131203895

PATIENT
  Sex: Female
  Weight: 74.84 kg

DRUGS (9)
  1. XARELTO [Suspect]
     Indication: THROMBOSIS PROPHYLAXIS
     Dosage: STRENGTH: 20 MG
     Route: 048
     Dates: start: 2012
  2. XARELTO [Suspect]
     Indication: ANTICOAGULANT THERAPY
     Dosage: STRENGTH: 20 MG
     Route: 048
     Dates: start: 2012
  3. XARELTO [Suspect]
     Indication: SYSTEMIC LUPUS ERYTHEMATOSUS
     Dosage: STRENGTH: 20 MG
     Route: 048
     Dates: start: 2012
  4. METHOTREXATE [Suspect]
     Indication: SYSTEMIC LUPUS ERYTHEMATOSUS
     Dosage: STRENGTH: 2.5 MG
     Route: 048
     Dates: end: 201311
  5. METHOTREXATE [Suspect]
     Indication: SYSTEMIC LUPUS ERYTHEMATOSUS
     Dosage: STRENGTH: 2.5 MG
     Route: 048
     Dates: end: 2013
  6. CRESTOR [Concomitant]
     Dosage: STRENGTH: 10 MG
     Route: 048
  7. LEVOTHYROXINE [Concomitant]
     Dosage: STRENGTH: 75 MG
     Route: 048
  8. FOLIC ACID [Concomitant]
     Indication: SYSTEMIC LUPUS ERYTHEMATOSUS
     Route: 048
  9. PREDNISONE [Concomitant]
     Indication: SYSTEMIC LUPUS ERYTHEMATOSUS
     Dosage: STRENGTH: 5 MG
     Route: 048

REACTIONS (9)
  - Systemic lupus erythematosus [Unknown]
  - Vaginal haemorrhage [Not Recovered/Not Resolved]
  - Uterine haemorrhage [Not Recovered/Not Resolved]
  - Nasopharyngitis [Not Recovered/Not Resolved]
  - Off label use [Unknown]
  - Stomatitis [Recovered/Resolved]
  - Abdominal distension [Recovered/Resolved]
  - Abdominal pain [Not Recovered/Not Resolved]
  - Malaise [Not Recovered/Not Resolved]
